FAERS Safety Report 5033376-5 (Version None)
Quarter: 2006Q2

REPORT INFORMATION
  Report Type: 
  Country: None (occurrence: None)
  Receive Date: 20060512
  Receipt Date: 20060310
  Transmission Date: 20061013
  Serious: No
  Sender: FDA-Public Use
  Company Number: SUS1-2006-00297

PATIENT
  Sex: Male

DRUGS (1)
  1. FOSRENOL [Suspect]
     Indication: HYPERPHOSPHATAEMIA
     Dosage: 1000 MG, 3X/DAY:TID
     Dates: start: 20060101, end: 20060201

REACTIONS (1)
  - BLOOD GLUCOSE INCREASED [None]
